FAERS Safety Report 25076824 (Version 1)
Quarter: 2025Q1

REPORT INFORMATION
  Report Type: Spontaneous
  Country: GB (occurrence: GB)
  Receive Date: 20250313
  Receipt Date: 20250313
  Transmission Date: 20250409
  Serious: Yes (Hospitalization, Other)
  Sender: TEVA
  Company Number: GB-TEVA-VS-3307616

PATIENT
  Age: 76 Year
  Sex: Male

DRUGS (13)
  1. BUMETANIDE [Suspect]
     Active Substance: BUMETANIDE
     Indication: Cardiac amyloidosis
     Route: 065
     Dates: start: 202411
  2. , glyceryl trinitrate [Concomitant]
     Indication: Angina pectoris
     Route: 065
  3. ISOSORBIDE MONONITRATE [Concomitant]
     Active Substance: ISOSORBIDE MONONITRATE
     Indication: Product used for unknown indication
     Route: 048
  4. BISOPROLOL [Suspect]
     Active Substance: BISOPROLOL
     Indication: Cardiac amyloidosis
     Route: 048
     Dates: start: 2016
  5. LEVOTHYROXINE [Concomitant]
     Active Substance: LEVOTHYROXINE
     Indication: Hypothyroidism
     Dosage: DOSAGE: 50 MCG STREMGTH:50MCG, DAILY DOSE:50MCG
     Route: 048
     Dates: start: 2010
  6. ASPIRIN [Concomitant]
     Active Substance: ASPIRIN
     Indication: Myocardial ischaemia
     Route: 048
     Dates: start: 2016, end: 202411
  7. OMEPRAZOLE [Concomitant]
     Active Substance: OMEPRAZOLE
     Indication: Gastrooesophageal reflux disease
     Route: 048
     Dates: start: 1980
  8. ATORVASTATIN [Concomitant]
     Active Substance: ATORVASTATIN
     Indication: Myocardial ischaemia
     Route: 065
     Dates: start: 20240112
  9. DAPAGLIFLOZIN [Concomitant]
     Active Substance: DAPAGLIFLOZIN
     Indication: Myocardial ischaemia
     Route: 048
     Dates: start: 20240112
  10. APIXABAN [Concomitant]
     Active Substance: APIXABAN
     Indication: Atrial fibrillation
     Route: 048
     Dates: start: 20241101
  11. PREGABALIN [Concomitant]
     Active Substance: PREGABALIN
     Indication: Skin infection
     Route: 048
     Dates: start: 202411
  12. SPIRONOLACTONE [Concomitant]
     Active Substance: SPIRONOLACTONE
     Indication: Cardiac amyloidosis
     Route: 048
     Dates: start: 20240106, end: 202411
  13. RAMIPRIL [Suspect]
     Active Substance: RAMIPRIL
     Indication: Myocardial ischaemia
     Route: 048
     Dates: start: 20240112, end: 202411

REACTIONS (5)
  - Cardiac amyloidosis [Unknown]
  - Loss of consciousness [Unknown]
  - Orthostatic hypotension [Recovered/Resolved]
  - Dyspnoea [Unknown]
  - Chest pain [Recovered/Resolved]

NARRATIVE: CASE EVENT DATE: 20240101
